FAERS Safety Report 5388898-4 (Version None)
Quarter: 2007Q3

REPORT INFORMATION
  Report Type: 
  Country: None (occurrence: None)
  Receive Date: 20070717
  Receipt Date: 20070706
  Transmission Date: 20080115
  Serious: Yes (Life-Threatening, Hospitalization)
  Sender: FDA-Public Use
  Company Number: HQWYE926206JUL07

PATIENT
  Age: 62 Year
  Sex: Female

DRUGS (29)
  1. AMIODARONE HCL [Suspect]
     Indication: ATRIAL FIBRILLATION
     Dosage: 200 MG, DOSE AND FREQUENCY UNSPECIFIED
     Route: 042
     Dates: start: 20070526, end: 20070528
  2. AMOXIL [Concomitant]
     Indication: LOWER RESPIRATORY TRACT INFECTION
     Route: 042
     Dates: start: 20070526, end: 20070529
  3. ASPIRIN [Concomitant]
     Dates: start: 20070526
  4. ATROVENT [Concomitant]
     Dosage: UNSPECIFIED
     Route: 045
     Dates: start: 20070529
  5. AUGMENTIN '125' [Concomitant]
     Route: 042
     Dates: start: 20070529
  6. CLOPIDOGREL [Concomitant]
     Route: 048
     Dates: start: 20070528, end: 20070530
  7. DIAZEPAM [Concomitant]
     Dates: start: 20070527
  8. DIGOXIN [Concomitant]
     Dosage: UNSPECIFIED
     Route: 042
     Dates: start: 20070530
  9. FENTANYL [Concomitant]
     Dosage: UNSPECIFIED
     Route: 042
     Dates: start: 20070506
  10. FUROSEMIDE [Concomitant]
     Dosage: UNSPECIFIED
     Route: 042
     Dates: start: 20070528
  11. HYDROCORTISONE [Concomitant]
     Dosage: UNSPECIFIED
     Route: 042
     Dates: start: 20070529
  12. LACTULOSE [Concomitant]
     Dates: start: 20070530
  13. LEMSIP FLU [Concomitant]
     Indication: NASOPHARYNGITIS
     Dosage: UNSPECIFIED
     Route: 048
     Dates: start: 20070520, end: 20070525
  14. MAGNESIUM SULFATE [Concomitant]
     Dosage: UNSPECIFIED
     Route: 042
     Dates: start: 20070526
  15. METRONIDAZOLE [Concomitant]
     Route: 042
     Dates: start: 20070529
  16. MIDAZOLAM HCL [Concomitant]
     Dosage: UNSPECIFIED
     Route: 042
     Dates: start: 20070529
  17. NICOTINE [Concomitant]
     Route: 062
     Dates: start: 20070526
  18. NORADRENALINE [Concomitant]
     Dosage: UNSPECIFIED
     Route: 011
     Dates: start: 20070529
  19. OLANZAPINE [Concomitant]
     Dates: start: 20070529
  20. ASCORBIC ACID/NICOTINAMIDE/PYRIDOXINE HYDROCHLORIDE/RIBOFLAVIN SODIUM [Concomitant]
     Dosage: UNSPECIFIED
     Route: 042
     Dates: start: 20070529
  21. ACETAMINOPHEN [Concomitant]
     Dates: start: 20070529
  22. PIPERACILLIN [Concomitant]
     Route: 042
     Dates: start: 20070530
  23. POTASSIUM CHLORIDE [Concomitant]
     Dosage: UNSPECIFIED
     Route: 042
     Dates: start: 20070526
  24. SALBUTAMOL [Concomitant]
     Dosage: UNSPECIFIED
     Route: 045
     Dates: start: 20070529
  25. SIMVASTATIN [Concomitant]
     Route: 048
     Dates: end: 20070526
  26. HEPARIN-FRACTION, SODIUM SALT [Concomitant]
     Dosage: UNSPECIFIED
     Route: 058
     Dates: start: 20070529
  27. VASOPRESSIN INJECTION [Concomitant]
     Dosage: UNSPECIFIED
     Route: 042
     Dates: start: 20070530
  28. PHYTOMENADIONE [Concomitant]
     Route: 042
  29. ADRENALINE [Concomitant]
     Dosage: UNSPECIFIED
     Route: 042
     Dates: start: 20070524

REACTIONS (1)
  - HEPATIC FAILURE [None]
